FAERS Safety Report 8115293-7 (Version None)
Quarter: 2012Q1

REPORT INFORMATION
  Report Type: 
  Country: None (occurrence: None)
  Receive Date: 20120206
  Receipt Date: 20120124
  Transmission Date: 20120608
  Serious: Yes (Hospitalization)
  Sender: FDA-Public Use
  Company Number: US-UCBSA-039521

PATIENT
  Age: 30 Year
  Sex: Female
  Weight: 59.09 kg

DRUGS (12)
  1. MULTI-VITAMINS [Concomitant]
  2. CIMZIA [Suspect]
     Indication: CROHN'S DISEASE
     Route: 058
     Dates: start: 20101013
  3. FONDAPARINUX SODIUM [Concomitant]
     Dosage: TOTAL DIALY DOSE: 2.5 MG
     Route: 058
  4. COUMADIN [Concomitant]
     Dosage: TOTAL DIALY DOSE: 7.5 MG
  5. FENTANYL CITRATE [Concomitant]
     Dosage: 50 MCG EVERY 72 HOURS
  6. HYDROMORPHONE HCL [Concomitant]
     Dosage: 2 MG, EVERY 4-6 HOURS
     Route: 048
  7. LOVENOX [Concomitant]
     Dosage: TOTAL DAILY DOSE: 90 MG
     Route: 058
  8. ALBUTEROL [Concomitant]
     Dosage: 2 PUFFS FOUR TIMES DAILY
  9. VALCYTE [Concomitant]
     Dosage: 450 MG TWO TWICE DAILY
     Route: 048
  10. CLONAZEPAM [Concomitant]
  11. FENTANYL CITRATE [Concomitant]
     Dosage: 75 MCG AS DIRECTED
     Route: 062
  12. ORTHO TRI-CYCLEN [Concomitant]
     Indication: ORAL CONTRACEPTION
     Route: 048

REACTIONS (3)
  - CROHN'S DISEASE [None]
  - CYTOMEGALOVIRUS INFECTION [None]
  - PORTAL VEIN THROMBOSIS [None]
